FAERS Safety Report 14487528 (Version 2)
Quarter: 2018Q2

REPORT INFORMATION
  Report Type: Spontaneous
  Country: US (occurrence: US)
  Receive Date: 20180205
  Receipt Date: 20180517
  Transmission Date: 20180711
  Serious: No
  Sender: FDA-Public Use
  Company Number: US-PFIZER INC-2018029807

PATIENT
  Sex: Female
  Weight: 56.69 kg

DRUGS (27)
  1. TAXOTERE [Suspect]
     Active Substance: DOCETAXEL
     Indication: BREAST CANCER FEMALE
     Dosage: UNK UNK, CYCLIC (6 CYCLES EVERY THREE WEEKS)
     Dates: start: 20160121, end: 20160505
  2. MAITAKE /08428501/ [Concomitant]
  3. PROBIOTIC /06395501/ [Concomitant]
     Active Substance: BIFIDOBACTERIUM ANIMALIS LACTIS
  4. VITAMIN A /00056001/ [Concomitant]
     Active Substance: RETINOL
  5. VITAMIN D /00107901/ [Concomitant]
     Active Substance: ERGOCALCIFEROL
  6. DOCETAXEL. [Suspect]
     Active Substance: DOCETAXEL
     Indication: BREAST CANCER FEMALE
     Dosage: UNK UNK, CYCLIC (6 CYCLES EVERY THREE WEEKS)
     Dates: start: 20160121, end: 20160505
  7. HERCEPTIN [Concomitant]
     Active Substance: TRASTUZUMAB
  8. BORAGE OIL [Concomitant]
     Active Substance: BORAGE OIL
  9. SPIRONOLACTONE. [Concomitant]
     Active Substance: SPIRONOLACTONE
  10. NEOSAR [Concomitant]
     Active Substance: CYCLOPHOSPHAMIDE
  11. DOCETAXEL. [Suspect]
     Active Substance: DOCETAXEL
     Indication: BREAST CANCER FEMALE
     Dosage: UNK UNK, CYCLIC (6 CYCLES EVERY THREE WEEKS)
     Dates: start: 20160121, end: 20160505
  12. GREEN TEA EXTRACT [Concomitant]
  13. NETTLE [Concomitant]
     Active Substance: URTICA DIOICA POLLEN
  14. OMEPRAZOLE. [Concomitant]
     Active Substance: OMEPRAZOLE
  15. TURMERIC /01079602/ [Concomitant]
     Active Substance: HERBALS\TURMERIC
  16. DOCEFREZ [Suspect]
     Active Substance: DOCETAXEL ANHYDROUS
     Indication: BREAST CANCER FEMALE
     Dosage: UNK UNK, CYCLIC (6 CYCLES EVERY THREE WEEKS)
     Dates: start: 20160121, end: 20160505
  17. ALPHA LIPOIC ACID [Concomitant]
     Active Substance: .ALPHA.-LIPOIC ACID
  18. ZINC PICOLINATE [Concomitant]
     Active Substance: ZINC PICOLINATE
  19. PARAPLATIN [Concomitant]
     Active Substance: CARBOPLATIN
  20. FISH OIL [Concomitant]
     Active Substance: FISH OIL
  21. VITAMIN C [Concomitant]
     Active Substance: ASCORBIC ACID
  22. VITAMIN E /00110501/ [Concomitant]
     Active Substance: TOCOPHEROL
  23. COQ 10 [Concomitant]
     Active Substance: UBIDECARENONE
  24. CLARITIN-D NOS [Suspect]
     Active Substance: LORATADINE\PSEUDOEPHEDRINE SULFATE
  25. CARBOPLATIN. [Concomitant]
     Active Substance: CARBOPLATIN
  26. VITAMIN B12 [Concomitant]
     Active Substance: CYANOCOBALAMIN
  27. SLIPPERY ELM [Concomitant]
     Active Substance: ELM

REACTIONS (4)
  - Hair texture abnormal [Not Recovered/Not Resolved]
  - Hair colour changes [Not Recovered/Not Resolved]
  - Hair disorder [Not Recovered/Not Resolved]
  - Alopecia [Not Recovered/Not Resolved]

NARRATIVE: CASE EVENT DATE: 20161105
